FAERS Safety Report 4747720-7 (Version None)
Quarter: 2005Q3

REPORT INFORMATION
  Report Type: 
  Country: None (occurrence: None)
  Receive Date: 20050816
  Receipt Date: 20050802
  Transmission Date: 20060218
  Serious: Yes (Hospitalization)
  Sender: FDA-Public Use
  Company Number: 200503IM000112

PATIENT
  Age: 61 Year
  Sex: Female

DRUGS (4)
  1. ADVAFERON (A643_INTERFERON ALFACON-1) [Suspect]
     Indication: HEPATITIS C
     Dosage: 18 MIU, QD, SUBCUTANEOUS
     Route: 058
     Dates: start: 20030612, end: 20030625
  2. CLOSTRIDIUM BUTYRICUM [Concomitant]
  3. DOMPERIDONE [Concomitant]
  4. LEVOFLOXACIN [Concomitant]

REACTIONS (8)
  - BACTERIAL INFECTION [None]
  - CONDITION AGGRAVATED [None]
  - CROHN'S DISEASE [None]
  - DIABETES MELLITUS [None]
  - GASTRIC ULCER HAEMORRHAGE [None]
  - HYPOALBUMINAEMIA [None]
  - PLATELET COUNT DECREASED [None]
  - WHITE BLOOD CELL COUNT DECREASED [None]
